FAERS Safety Report 21176446 (Version 1)
Quarter: 2022Q3

REPORT INFORMATION
  Report Type: Other
  Country: JP (occurrence: JP)
  Receive Date: 20220805
  Receipt Date: 20220805
  Transmission Date: 20221027
  Serious: Yes (Hospitalization, Other)
  Sender: FDA-Public Use
  Company Number: JP-CHUGAI-2022029680

PATIENT
  Age: 62 Year

DRUGS (3)
  1. ATEZOLIZUMAB [Suspect]
     Active Substance: ATEZOLIZUMAB
     Indication: Hepatocellular carcinoma
     Dosage: 1200 MILLIGRAM
     Route: 041
     Dates: start: 20210108, end: 20220711
  2. BEVACIZUMAB [Suspect]
     Active Substance: BEVACIZUMAB
     Indication: Hepatocellular carcinoma
     Route: 041
     Dates: start: 20210108
  3. BEVACIZUMAB [Suspect]
     Active Substance: BEVACIZUMAB
     Route: 041
     Dates: end: 20220711

REACTIONS (6)
  - Enterocolitis [Not Recovered/Not Resolved]
  - Prerenal failure [Not Recovered/Not Resolved]
  - Myocardial infarction [Unknown]
  - Diarrhoea [Unknown]
  - Proteinuria [Unknown]
  - Dehydration [Unknown]

NARRATIVE: CASE EVENT DATE: 20220725
